FAERS Safety Report 12657684 (Version 1)
Quarter: 2016Q3

REPORT INFORMATION
  Report Type: Other
  Country: US (occurrence: US)
  Receive Date: 20160816
  Receipt Date: 20160816
  Transmission Date: 20161109
  Serious: Yes (Life-Threatening, Hospitalization, Other)
  Sender: FDA-Public Use
  Company Number: US-ACIC FINE CHEMICALS INC-1056401

PATIENT
  Age: 66 Year
  Sex: Male

DRUGS (10)
  1. PROPOFOL. [Concomitant]
     Active Substance: PROPOFOL
  2. DESFLURANE. [Concomitant]
     Active Substance: DESFLURANE
  3. ALBUMIN 5% [Concomitant]
     Active Substance: ALBUMIN HUMAN
  4. TRANEXAMIC ACID. [Suspect]
     Active Substance: TRANEXAMIC ACID
     Route: 041
  5. FENTANYL. [Concomitant]
     Active Substance: FENTANYL
  6. LIDOCAINE. [Concomitant]
     Active Substance: LIDOCAINE
  7. SUFENTANIL CITRATE. [Concomitant]
     Active Substance: SUFENTANIL CITRATE
  8. MIDAZOLAM [Concomitant]
     Active Substance: MIDAZOLAM\MIDAZOLAM HYDROCHLORIDE
  9. LABETALOL [Concomitant]
     Active Substance: LABETALOL\LABETALOL HYDROCHLORIDE
  10. TRANEXAMIC ACID. [Suspect]
     Active Substance: TRANEXAMIC ACID
     Route: 040

REACTIONS (5)
  - Electrocardiogram ST-T segment elevation [Recovered/Resolved]
  - Ventricular hypokinesia [Unknown]
  - Coronary artery occlusion [None]
  - Troponin increased [Recovered/Resolved]
  - Intracardiac thrombus [Unknown]
